FAERS Safety Report 17488524 (Version 2)
Quarter: 2020Q2

REPORT INFORMATION
  Report Type: Spontaneous
  Country: PH (occurrence: PH)
  Receive Date: 20200303
  Receipt Date: 20200428
  Transmission Date: 20200713
  Serious: Yes (Death)
  Sender: FDA-Public Use
  Company Number: PH-PFIZER INC-2020090289

PATIENT

DRUGS (1)
  1. ZAVEDOS [Suspect]
     Active Substance: IDARUBICIN
     Dosage: 5 MG, UNK

REACTIONS (1)
  - Death [Fatal]
